FAERS Safety Report 7776986-4 (Version None)
Quarter: 2011Q3

REPORT INFORMATION
  Report Type: 
  Country: None (occurrence: None)
  Receive Date: 20110926
  Receipt Date: 20110916
  Transmission Date: 20111222
  Serious: Yes (Death)
  Sender: FDA-Public Use
  Company Number: CA-UCBSA-041502

PATIENT
  Sex: Male
  Weight: 104.5 kg

DRUGS (1)
  1. CIMZIA [Suspect]
     Indication: RHEUMATOID ARTHRITIS
     Route: 058
     Dates: start: 20110726, end: 20110823

REACTIONS (4)
  - DEATH [None]
  - HEADACHE [None]
  - DIARRHOEA [None]
  - DYSPNOEA [None]
